FAERS Safety Report 11195747 (Version 1)
Quarter: 2015Q2

REPORT INFORMATION
  Report Type: Report from Study
  Country: US (occurrence: US)
  Receive Date: 20150617
  Receipt Date: 20150617
  Transmission Date: 20150821
  Serious: Yes (Hospitalization)
  Sender: FDA-Public Use
  Company Number: US-BIOGENIDEC-2015BI082061

PATIENT
  Age: 48 Year
  Sex: Male

DRUGS (18)
  1. CYMBALTA [Concomitant]
     Active Substance: DULOXETINE HYDROCHLORIDE
  2. LOVAZA [Concomitant]
     Active Substance: OMEGA-3-ACID ETHYL ESTERS
  3. NEXIUM [Concomitant]
     Active Substance: ESOMEPRAZOLE MAGNESIUM
  4. L-GLUTAMINE TABLET [Concomitant]
  5. TECFIDERA [Suspect]
     Active Substance: DIMETHYL FUMARATE
     Indication: MULTIPLE SCLEROSIS
     Route: 048
  6. STOOL SOFTNER-LAXATIVE [Concomitant]
  7. VITAMIN B12 [Concomitant]
     Active Substance: CYANOCOBALAMIN
  8. ACIDOPHILUS-PECTIN CAPSULE [Concomitant]
  9. VITAMIN B COMPLEX [Concomitant]
     Active Substance: CYANOCOBALAMIN\DEXPANTHENOL\NIACINAMIDE\PYRIDOXINE HYDROCHLORIDE\RIBOFLAVIN 5^-PHOSPHATE SODIUM\THIAMINE HYDROCHLORIDE\VITAMIN B COMPLEX
  10. RESVERATROL CAPSULE [Concomitant]
  11. BACLOFEN TABLET [Concomitant]
  12. KEPPRA [Concomitant]
     Active Substance: LEVETIRACETAM
  13. CRANBERRY TABLET [Concomitant]
  14. TURMERIC CAPSULE [Concomitant]
  15. CURCUMIN POWDER [Concomitant]
  16. CINNAMON. [Concomitant]
     Active Substance: CINNAMON
  17. KRILL OIL [Concomitant]
     Active Substance: DIETARY SUPPLEMENT
  18. HYALURONIC ACID [Concomitant]
     Active Substance: HYALURONIC ACID

REACTIONS (1)
  - Gastrointestinal viral infection [Unknown]

NARRATIVE: CASE EVENT DATE: 201503
